FAERS Safety Report 9869231 (Version 1)
Quarter: 2014Q1

REPORT INFORMATION
  Report Type: Report from Study
  Country: FR (occurrence: FR)
  Receive Date: 20140205
  Receipt Date: 20140205
  Transmission Date: 20141002
  Serious: Yes (Hospitalization)
  Sender: FDA-Public Use
  Company Number: FR-ROCHE-1339193

PATIENT
  Sex: Male

DRUGS (21)
  1. RITUXIMAB [Suspect]
     Indication: RHEUMATOID ARTHRITIS
     Dosage: DAY 1
     Route: 042
     Dates: start: 20060622
  2. RITUXIMAB [Suspect]
     Dosage: DAY 15
     Route: 042
     Dates: start: 20060706
  3. RITUXIMAB [Suspect]
     Dosage: DAY 1
     Route: 042
     Dates: start: 20070507
  4. RITUXIMAB [Suspect]
     Dosage: DAY 15
     Route: 042
     Dates: start: 20070522
  5. RITUXIMAB [Suspect]
     Dosage: DAY 1
     Route: 042
     Dates: start: 20080703
  6. RITUXIMAB [Suspect]
     Dosage: DAY 15
     Route: 042
     Dates: start: 20080717
  7. RITUXIMAB [Suspect]
     Dosage: DAY 1
     Route: 042
     Dates: start: 20090327
  8. RITUXIMAB [Suspect]
     Dosage: DAY 15
     Route: 042
     Dates: start: 20090410
  9. RITUXIMAB [Suspect]
     Dosage: DAY 1
     Route: 042
     Dates: start: 20100211
  10. RITUXIMAB [Suspect]
     Dosage: DAY 15
     Route: 042
     Dates: start: 20100225
  11. RITUXIMAB [Suspect]
     Dosage: DAY 1
     Route: 042
     Dates: start: 20110114
  12. RITUXIMAB [Suspect]
     Dosage: DAY 15
     Route: 042
     Dates: start: 20110128
  13. RITUXIMAB [Suspect]
     Dosage: DAY 1
     Route: 042
     Dates: start: 20110913
  14. RITUXIMAB [Suspect]
     Dosage: DAY 15
     Route: 042
     Dates: start: 20110927
  15. RITUXIMAB [Suspect]
     Dosage: DAY 1
     Route: 042
     Dates: start: 20120924
  16. RITUXIMAB [Suspect]
     Dosage: DAY 1
     Route: 042
     Dates: start: 20121011
  17. METHOTREXATE [Concomitant]
     Dosage: ON AN UNKNOWN DATE STARTED IN 2006
     Route: 065
  18. METHOTREXATE [Concomitant]
     Route: 065
     Dates: start: 200706
  19. CORTANCYL [Concomitant]
     Route: 065
  20. ARAVA [Concomitant]
     Route: 065
  21. CELEBREX [Concomitant]
     Route: 065

REACTIONS (9)
  - General physical health deterioration [Recovered/Resolved]
  - Rhinitis [Recovered/Resolved]
  - Lymphopenia [Not Recovered/Not Resolved]
  - Interstitial lung disease [Not Recovered/Not Resolved]
  - Cough [Recovered/Resolved]
  - Lung disorder [Recovered/Resolved]
  - Skin lesion [Unknown]
  - Rash erythematous [Unknown]
  - Bronchitis [Recovered/Resolved]
